FAERS Safety Report 16304918 (Version 8)
Quarter: 2020Q4

REPORT INFORMATION
  Report Type: Spontaneous
  Country: JP (occurrence: JP)
  Receive Date: 20190513
  Receipt Date: 20201012
  Transmission Date: 20210113
  Serious: Yes (Hospitalization, Other)
  Sender: FDA-Public Use
  Company Number: JP-CELGENEUS-JPN-20190503223

PATIENT
  Age: 71 Year
  Sex: Male
  Weight: 65 kg

DRUGS (10)
  1. FERRIC CITRATE HYDRATE [Concomitant]
     Indication: PRODUCT USED FOR UNKNOWN INDICATION
     Route: 065
     Dates: start: 2018, end: 2018
  2. DEXAMETHASONE. [Concomitant]
     Active Substance: DEXAMETHASONE
     Dosage: UNKNOWN
     Route: 065
     Dates: start: 20180705
  3. REVLIMID [Suspect]
     Active Substance: LENALIDOMIDE
     Dosage: UNKNOWN
     Route: 048
     Dates: start: 20180705
  4. LEVOTHYROXINE SODIUM HYDRATE [Concomitant]
     Active Substance: LEVOTHYROXINE SODIUM
     Indication: PRODUCT USED FOR UNKNOWN INDICATION
     Dosage: 125 MICROGRAM
     Route: 048
     Dates: start: 2018
  5. REVLIMID [Suspect]
     Active Substance: LENALIDOMIDE
     Indication: PLASMA CELL MYELOMA
     Route: 048
     Dates: start: 201609
  6. DEXAMETHASONE. [Concomitant]
     Active Substance: DEXAMETHASONE
     Indication: PLASMA CELL MYELOMA
     Route: 065
     Dates: start: 201609
  7. ALFACALCIDOL [Concomitant]
     Active Substance: ALFACALCIDOL
     Indication: PRODUCT USED FOR UNKNOWN INDICATION
     Dosage: 0.25 MICROGRAM
     Route: 048
     Dates: start: 2018, end: 201807
  8. ALFACALCIDOL [Concomitant]
     Active Substance: ALFACALCIDOL
     Route: 048
     Dates: start: 2018
  9. PRECIPITATED CALCIUM CARBONATE [Concomitant]
     Active Substance: CALCIUM CARBONATE
     Indication: PRODUCT USED FOR UNKNOWN INDICATION
     Route: 065
     Dates: start: 2018
  10. FERRIC CITRATE HYDRATE [Concomitant]
     Dosage: 750-1500 MICROGRAM
     Route: 065
     Dates: start: 2018

REACTIONS (6)
  - Pulmonary calcification [Recovering/Resolving]
  - Infection [Recovering/Resolving]
  - Thyroid cancer [Recovering/Resolving]
  - Organising pneumonia [Unknown]
  - Hypoparathyroidism [Unknown]
  - Renal impairment [Recovering/Resolving]

NARRATIVE: CASE EVENT DATE: 2018
